FAERS Safety Report 7762425-6 (Version None)
Quarter: 2011Q3

REPORT INFORMATION
  Report Type: 
  Country: None (occurrence: None)
  Receive Date: 20110920
  Receipt Date: 20110913
  Transmission Date: 20111222
  Serious: Yes (Hospitalization)
  Sender: FDA-Public Use
  Company Number: US-ABBOTT-11P-163-0855092-00

PATIENT
  Sex: Female

DRUGS (1)
  1. HUMIRA [Suspect]
     Indication: RHEUMATOID ARTHRITIS
     Route: 058
     Dates: start: 20110301

REACTIONS (5)
  - RENAL DISORDER [None]
  - HYPOTENSION [None]
  - URINARY TRACT INFECTION [None]
  - PYREXIA [None]
  - VOMITING [None]
